FAERS Safety Report 7238828-5 (Version None)
Quarter: 2011Q1

REPORT INFORMATION
  Report Type: 
  Country: None (occurrence: None)
  Receive Date: 20110121
  Receipt Date: 20110107
  Transmission Date: 20110831
  Serious: Yes (Hospitalization, Other)
  Sender: FDA-Public Use
  Company Number: PHHY2010JP88358

PATIENT
  Age: 70 Year
  Sex: Male

DRUGS (2)
  1. ZOMETA [Suspect]
     Dates: start: 20070501
  2. TAXOTERE [Concomitant]
     Dosage: UNK
     Dates: start: 20081201

REACTIONS (8)
  - GENERAL PHYSICAL HEALTH DETERIORATION [None]
  - OSTEONECROSIS OF JAW [None]
  - BONE DISORDER [None]
  - X-RAY ABNORMAL [None]
  - BLADDER TAMPONADE [None]
  - DENTAL DISCOMFORT [None]
  - URINARY RETENTION [None]
  - HAEMATURIA [None]
